FAERS Safety Report 20157052 (Version 1)
Quarter: 2021Q4

REPORT INFORMATION
  Report Type: Report from Study
  Country: CA (occurrence: CA)
  Receive Date: 20211207
  Receipt Date: 20211207
  Transmission Date: 20220303
  Serious: Yes (Other)
  Sender: FDA-Public Use
  Company Number: CA-TAKEDA-2021TUS076801

PATIENT
  Age: 73 Year
  Sex: Male

DRUGS (2)
  1. ICATIBANT [Suspect]
     Active Substance: ICATIBANT ACETATE
     Indication: Off label use
     Dosage: 30MG/3ML AS NEEDED
     Route: 065
     Dates: start: 20170401
  2. ICATIBANT [Suspect]
     Active Substance: ICATIBANT ACETATE
     Indication: Off label use
     Dosage: 30MG/3ML AS NEEDED
     Route: 065
     Dates: start: 20170401

REACTIONS (1)
  - Angina pectoris [Not Recovered/Not Resolved]

NARRATIVE: CASE EVENT DATE: 20211001
